FAERS Safety Report 9136748 (Version 3)
Quarter: 2013Q2

REPORT INFORMATION
  Report Type: Spontaneous
  Country: US (occurrence: US)
  Receive Date: 20130304
  Receipt Date: 20130502
  Transmission Date: 20140414
  Serious: Yes (Hospitalization, Other)
  Sender: FDA-Public Use
  Company Number: US-CELGENEUS-163-20785-13024029

PATIENT
  Sex: Male
  Weight: 93.5 kg

DRUGS (6)
  1. THALOMID [Suspect]
     Indication: PLASMA CELL MYELOMA
     Dosage: 50 MILLIGRAM
     Route: 048
     Dates: start: 201204
  2. THALOMID [Suspect]
     Indication: CHRONIC LYMPHOCYTIC LEUKAEMIA
     Dosage: 50 MILLIGRAM
     Route: 048
     Dates: start: 201205
  3. THALOMID [Suspect]
     Dosage: 50MG ALTERNATING WITH 100MG
     Route: 048
     Dates: start: 201304
  4. COUMADIN [Concomitant]
     Indication: HYPERTENSION
     Route: 065
  5. COUMADIN [Concomitant]
     Indication: CORONARY ARTERY DISEASE
  6. IRON [Concomitant]
     Indication: PRODUCT USED FOR UNKNOWN INDICATION
     Route: 065

REACTIONS (3)
  - Haemorrhage [Unknown]
  - Oedema [Unknown]
  - Myocardial infarction [Unknown]
